FAERS Safety Report 7157310-7 (Version None)
Quarter: 2010Q4

REPORT INFORMATION
  Report Type: 
  Country: None (occurrence: None)
  Receive Date: 20101214
  Receipt Date: 20101209
  Transmission Date: 20110411
  Serious: No
  Sender: FDA-Public Use
  Company Number: US-PFIZER INC-2010160897

PATIENT
  Sex: Male
  Weight: 82.993 kg

DRUGS (2)
  1. DETROL LA [Suspect]
     Indication: BLADDER PAIN
     Dosage: 4 MG, 1X/DAY
     Route: 048
     Dates: start: 20101001, end: 20101101
  2. INSULIN [Concomitant]
     Indication: DIABETES MELLITUS
     Dosage: UNK
     Dates: start: 20100101

REACTIONS (2)
  - AGEUSIA [None]
  - DECREASED APPETITE [None]
